FAERS Safety Report 9148822 (Version 1)
Quarter: 2013Q1

REPORT INFORMATION
  Report Type: Spontaneous
  Country: JP (occurrence: JP)
  Receive Date: 20130308
  Receipt Date: 20130308
  Transmission Date: 20140127
  Serious: Yes (Other)
  Sender: FDA-Public Use
  Company Number: PHHY2013JP022888

PATIENT
  Sex: 0

DRUGS (1)
  1. FEMARA [Suspect]
     Dosage: UNK UKN, UNK
     Route: 048

REACTIONS (2)
  - Fall [Unknown]
  - Meniscus injury [Unknown]
